FAERS Safety Report 5499960-X (Version None)
Quarter: 2007Q4

REPORT INFORMATION
  Report Type: 
  Country: None (occurrence: None)
  Receive Date: 20071026
  Receipt Date: 20071022
  Transmission Date: 20080405
  Serious: Yes (Other)
  Sender: FDA-Public Use
  Company Number: PT-ABBOTT-07P-130-0418713-00

PATIENT
  Age: 24 Year
  Sex: Female

DRUGS (2)
  1. REDUCTIL 10MG [Suspect]
     Indication: WEIGHT CONTROL
  2. ANTICONCEPTIONAL DRUGS [Concomitant]
     Indication: CONTRACEPTION

REACTIONS (4)
  - DIZZINESS [None]
  - HOT FLUSH [None]
  - LOSS OF CONSCIOUSNESS [None]
  - TACHYCARDIA [None]
